FAERS Safety Report 9795443 (Version 1)
Quarter: 2014Q1

REPORT INFORMATION
  Report Type: Spontaneous
  Country: IT (occurrence: IT)
  Receive Date: 20140103
  Receipt Date: 20140103
  Transmission Date: 20141002
  Serious: Yes (Other)
  Sender: FDA-Public Use
  Company Number: IT-MYLANLABS-113AS20130670

PATIENT
  Age: 81 Year
  Sex: Female

DRUGS (7)
  1. DOXAZOSIN MESILATE [Suspect]
     Indication: HYPERTENSION
     Dosage: 2 MG DAILY
     Route: 048
     Dates: start: 20131112, end: 20131112
  2. ZANEDIP [Suspect]
     Indication: HYPERTENSION
     Dosage: 20 MG DAILY
     Route: 048
     Dates: start: 20131111, end: 20131112
  3. LASITONE [Suspect]
     Indication: HYPERTENSION
     Dosage: 62 MG DAILY
     Route: 048
     Dates: start: 20131111, end: 20131112
  4. CARDIOASPIRIN [Concomitant]
     Indication: PRODUCT USED FOR UNKNOWN INDICATION
     Dosage: 100 MG
     Route: 048
  5. VELAMOX /00249602/ [Concomitant]
     Indication: ERYSIPELAS
     Dosage: 3 G
     Route: 048
     Dates: start: 20131111, end: 20131112
  6. OLMESARTAN MEDOXOMIL [Concomitant]
     Indication: HYPERTENSION
     Dosage: 20 MG
     Route: 048
  7. ATENOLOL [Concomitant]
     Indication: HYPERTENSION
     Dosage: 100 MG
     Route: 048

REACTIONS (3)
  - Hypotension [Recovered/Resolved]
  - Overdose [Recovered/Resolved]
  - Medication error [Unknown]
